FAERS Safety Report 12891366 (Version 2)
Quarter: 2018Q3

REPORT INFORMATION
  Report Type: Spontaneous
  Country: CO (occurrence: CO)
  Receive Date: 20161028
  Receipt Date: 20180827
  Transmission Date: 20181010
  Serious: Yes (Disabling, Other)
  Sender: FDA-Public Use
  Company Number: CO-AMGEN-COLSP2016109289

PATIENT
  Age: 80 Year
  Sex: Male

DRUGS (1)
  1. ENBREL [Suspect]
     Active Substance: ETANERCEPT
     Indication: RHEUMATOID ARTHRITIS
     Dosage: 50 MG, WEEKLY
     Route: 058
     Dates: start: 1998, end: 201806

REACTIONS (1)
  - Arthralgia [Not Recovered/Not Resolved]
